FAERS Safety Report 12613436 (Version 19)
Quarter: 2017Q4

REPORT INFORMATION
  Report Type: Report from Study
  Country: IQ (occurrence: IQ)
  Receive Date: 20160802
  Receipt Date: 20171227
  Transmission Date: 20180320
  Serious: Yes (Other)
  Sender: FDA-Public Use
  Company Number: PHHY2016IQ041045

PATIENT
  Age: 38 Year
  Sex: Female
  Weight: 84 kg

DRUGS (1)
  1. TASIGNA [Suspect]
     Active Substance: NILOTINIB
     Indication: CHRONIC MYELOID LEUKAEMIA
     Dosage: 800 MG, QD
     Route: 048
     Dates: start: 20160323

REACTIONS (59)
  - Fatigue [Not Recovered/Not Resolved]
  - Granuloma skin [Not Recovered/Not Resolved]
  - Skin disorder [Not Recovered/Not Resolved]
  - Palpitations [Unknown]
  - Dyspepsia [Recovered/Resolved]
  - Abdominal pain [Unknown]
  - Abdominal distension [Unknown]
  - Muscle spasms [Not Recovered/Not Resolved]
  - Weight increased [Recovering/Resolving]
  - Nephrolithiasis [Recovering/Resolving]
  - Hair growth abnormal [Unknown]
  - Blood urine present [Unknown]
  - Weight decreased [Not Recovered/Not Resolved]
  - Dizziness [Not Recovered/Not Resolved]
  - Paraesthesia [Not Recovered/Not Resolved]
  - Alopecia [Recovered/Resolved]
  - Menstrual disorder [Recovered/Resolved]
  - Arthralgia [Not Recovered/Not Resolved]
  - Headache [Recovering/Resolving]
  - Tremor [Unknown]
  - Renal pain [Recovered/Resolved]
  - Menstruation delayed [Recovered/Resolved]
  - Nail growth abnormal [Unknown]
  - Dyspnoea [Not Recovered/Not Resolved]
  - Chromaturia [Unknown]
  - Overweight [Unknown]
  - Haematuria [Recovered/Resolved]
  - Chest discomfort [Unknown]
  - Urinary tract infection [Unknown]
  - Cardiac disorder [Unknown]
  - Incorrect drug administration duration [Unknown]
  - Nervousness [Unknown]
  - Hypotension [Not Recovered/Not Resolved]
  - Chest pain [Unknown]
  - Dysuria [Recovering/Resolving]
  - Pyrexia [Unknown]
  - Bone pain [Not Recovered/Not Resolved]
  - Ovarian cyst [Recovered/Resolved]
  - Pallor [Unknown]
  - Respiration abnormal [Unknown]
  - Blood calcium decreased [Not Recovered/Not Resolved]
  - Urinary tract infection [Recovered/Resolved]
  - Constipation [Not Recovered/Not Resolved]
  - Anaemia [Not Recovered/Not Resolved]
  - Back pain [Not Recovered/Not Resolved]
  - Anxiety [Unknown]
  - Flank pain [Unknown]
  - Hot flush [Not Recovered/Not Resolved]
  - Hyperhidrosis [Unknown]
  - Nausea [Not Recovered/Not Resolved]
  - Menstrual disorder [Recovering/Resolving]
  - Uterine enlargement [Unknown]
  - Blood prolactin increased [Not Recovered/Not Resolved]
  - Insomnia [Not Recovered/Not Resolved]
  - Dry skin [Unknown]
  - Tachycardia [Unknown]
  - Eye pain [Unknown]
  - Cytogenetic analysis abnormal [Not Recovered/Not Resolved]
  - Hypertension [Recovering/Resolving]

NARRATIVE: CASE EVENT DATE: 201609
